FAERS Safety Report 18064329 (Version 1)
Quarter: 2020Q3

REPORT INFORMATION
  Report Type: Spontaneous
  Country: US (occurrence: US)
  Receive Date: 20200724
  Receipt Date: 20200724
  Transmission Date: 20201103
  Serious: No
  Sender: FDA-Public Use
  Company Number: US-TEVA-2020-US-1804385

PATIENT
  Age: 75 Year
  Sex: Female

DRUGS (1)
  1. BUDESONIDE ER TEVA [Suspect]
     Active Substance: BUDESONIDE
     Indication: COLITIS ULCERATIVE
     Dosage: HAS BEEN ON THE MEDICATION FOR FIVE TO SIX WEEKS
     Route: 065

REACTIONS (3)
  - Diarrhoea [Not Recovered/Not Resolved]
  - Food intolerance [Unknown]
  - Product substitution issue [Unknown]
